FAERS Safety Report 8984848 (Version 1)
Quarter: 2012Q4

REPORT INFORMATION
  Report Type: 
  Country: IN (occurrence: IN)
  Receive Date: 20121226
  Receipt Date: 20121226
  Transmission Date: 20130627
  Serious: Yes (Hospitalization)
  Sender: FDA-Public Use
  Company Number: IN-SANOFI-AVENTIS-2012SA094271

PATIENT
  Age: 8 Month
  Sex: Female
  Weight: 6 kg

DRUGS (6)
  1. ISONIAZID [Suspect]
     Indication: TUBERCULOSIS
     Route: 065
  2. RIFAMPICIN [Suspect]
     Indication: TUBERCULOSIS
     Route: 065
  3. ETHAMBUTOL [Suspect]
     Indication: TUBERCULOSIS
     Route: 065
  4. PYRAZINAMIDE [Suspect]
     Indication: TUBERCULOSIS
     Route: 065
  5. ANTIBIOTICS [Concomitant]
     Indication: COUGH
  6. ANTIBIOTICS [Concomitant]
     Indication: RESPIRATION ABNORMAL

REACTIONS (8)
  - Lymphadenopathy mediastinal [Recovered/Resolved]
  - Paradoxical drug reaction [Recovered/Resolved]
  - Pyrexia [Recovered/Resolved]
  - White blood cell count increased [Recovered/Resolved]
  - Respiratory distress [Recovered/Resolved]
  - Respiratory rate increased [Recovered/Resolved]
  - Cough [Recovered/Resolved]
  - Feeding disorder [Recovered/Resolved]
